FAERS Safety Report 7010423-2 (Version None)
Quarter: 2010Q3

REPORT INFORMATION
  Report Type: 
  Country: None (occurrence: None)
  Receive Date: 20100923
  Receipt Date: 20100913
  Transmission Date: 20110219
  Serious: Yes (Other)
  Sender: FDA-Public Use
  Company Number: US-PERRIGO-10US013006

PATIENT
  Sex: Female
  Weight: 104.31 kg

DRUGS (1)
  1. IBUPROFEN 200MG 517 [Suspect]
     Indication: PRODUCT USED FOR UNKNOWN INDICATION
     Dosage: 600 MG, SINGLE
     Route: 048
     Dates: start: 20100908, end: 20100908

REACTIONS (8)
  - ANAPHYLACTIC REACTION [None]
  - DYSPNOEA [None]
  - ERYTHEMA [None]
  - EYE SWELLING [None]
  - FATIGUE [None]
  - GENERALISED OEDEMA [None]
  - INCORRECT DOSE ADMINISTERED [None]
  - URTICARIA [None]
